FAERS Safety Report 5168970-4 (Version None)
Quarter: 2006Q4

REPORT INFORMATION
  Report Type: 
  Country: None (occurrence: None)
  Receive Date: 20061211
  Receipt Date: 20061201
  Transmission Date: 20070319
  Serious: Yes (Other)
  Sender: FDA-Public Use
  Company Number: JP-BRISTOL-MYERS SQUIBB COMPANY-13601216

PATIENT
  Age: 46 Year
  Sex: Male

DRUGS (2)
  1. TAXOL [Suspect]
     Indication: LUNG NEOPLASM MALIGNANT
     Route: 041
     Dates: start: 20061201, end: 20061201
  2. KYTRIL [Concomitant]
     Route: 042
     Dates: end: 20061201

REACTIONS (2)
  - ASTHMA [None]
  - BLOOD PRESSURE INCREASED [None]
